FAERS Safety Report 14587562 (Version 1)
Quarter: 2018Q1

REPORT INFORMATION
  Report Type: Report from Study
  Country: BE (occurrence: BE)
  Receive Date: 20180301
  Receipt Date: 20180301
  Transmission Date: 20180509
  Serious: Yes (Death)
  Sender: FDA-Public Use
  Company Number: BE-EMD SERONO-E2B_90023350

PATIENT
  Age: 64 Year

DRUGS (1)
  1. REBIF [Suspect]
     Active Substance: INTERFERON BETA-1A
     Indication: PRODUCT USED FOR UNKNOWN INDICATION
     Dosage: PRE-FILLED SYRINGE
     Route: 058
     Dates: start: 20051201

REACTIONS (1)
  - Death [Fatal]

NARRATIVE: CASE EVENT DATE: 20180217
